FAERS Safety Report 5855043-8 (Version None)
Quarter: 2008Q3

REPORT INFORMATION
  Report Type: 
  Country: None (occurrence: None)
  Receive Date: 20080822
  Receipt Date: 20080617
  Transmission Date: 20090109
  Serious: No
  Sender: FDA-Public Use
  Company Number: US-ABBOTT-08P-163-0458390-00

PATIENT
  Sex: Female
  Weight: 68.1 kg

DRUGS (3)
  1. LEVOTHYROXINE SODIUM [Suspect]
     Indication: HYPOTHYROIDISM
     Dosage: EVERY TUES., THURS., SAT., AND SUN
     Route: 048
  2. LEVOTHYROXINE SODIUM [Suspect]
     Dosage: EVERY MON., WED., AND FRI.
  3. DETRAL [Concomitant]
     Indication: MULTIPLE SCLEROSIS
     Dosage: UNKNOWN DOSE ONE A DAY
     Route: 048

REACTIONS (1)
  - ALOPECIA [None]
